FAERS Safety Report 6725301-3 (Version None)
Quarter: 2010Q2

REPORT INFORMATION
  Report Type: 
  Country: None (occurrence: None)
  Receive Date: 20100514
  Receipt Date: 20100506
  Transmission Date: 20101027
  Serious: Yes (Life-Threatening)
  Sender: FDA-Public Use
  Company Number: JP-MPIJNJ-2010-02531

PATIENT

DRUGS (17)
  1. VELCADE [Suspect]
     Indication: MULTIPLE MYELOMA
     Dosage: 1.7 MG, UNK
     Route: 042
     Dates: start: 20070903, end: 20070910
  2. VELCADE [Suspect]
     Dosage: 1.4 MG, UNK
     Route: 042
     Dates: start: 20070925, end: 20071002
  3. FUNGUARD [Suspect]
     Indication: PNEUMONIA FUNGAL
     Dosage: 200 MG, UNK
     Route: 042
     Dates: start: 20070821, end: 20070913
  4. FUNGUARD [Suspect]
     Dosage: 200 MG, UNK
     Route: 042
     Dates: start: 20070922
  5. VFEND [Suspect]
     Indication: PNEUMONIA FUNGAL
     Dosage: 400 MG, UNK
     Route: 048
     Dates: start: 20070706, end: 20070913
  6. VFEND [Suspect]
     Dosage: 400 MG, UNK
     Route: 048
     Dates: start: 20070926, end: 20071029
  7. LAXOBERON [Concomitant]
     Indication: CONSTIPATION
     Dosage: UNK
     Route: 048
     Dates: start: 20070623, end: 20070928
  8. ZYLORIC                            /00003301/ [Concomitant]
     Indication: PROPHYLAXIS
     Dosage: 250 MG, UNK
     Route: 048
     Dates: start: 20060615, end: 20070912
  9. SOLDEM 1 [Concomitant]
     Indication: PROPHYLAXIS
     Dosage: 1000 ML, UNK
     Route: 042
     Dates: start: 20070903, end: 20071003
  10. KLARICID [Concomitant]
     Indication: ATYPICAL MYCOBACTERIAL INFECTION
     Dosage: 600 MG, UNK
     Route: 048
     Dates: start: 20070821, end: 20070914
  11. ALLOID G [Concomitant]
     Indication: ABDOMINAL DISCOMFORT
     Dosage: 60 ML, UNK
     Route: 048
     Dates: start: 20070630, end: 20070904
  12. SELBEX [Concomitant]
     Indication: ABDOMINAL DISCOMFORT
     Dosage: 150 MG, UNK
     Route: 048
     Dates: start: 20070615, end: 20070914
  13. COTRIM [Concomitant]
     Indication: PROPHYLAXIS
     Dosage: 2 DF, UNK
     Route: 048
     Dates: start: 20070714, end: 20070911
  14. ADALAT [Concomitant]
     Indication: BLOOD PRESSURE INCREASED
     Dosage: 10 MG, UNK
     Route: 048
     Dates: start: 20070904, end: 20070904
  15. CALONAL [Concomitant]
     Indication: HEADACHE
     Dosage: 400 MG, UNK
     Dates: start: 20070905, end: 20070913
  16. SODIUM CHLORIDE [Concomitant]
     Indication: PROPHYLAXIS
     Dosage: 500 ML, UNK
     Route: 042
     Dates: start: 20070905, end: 20070913
  17. SOLDEM 3A [Concomitant]
     Indication: PROPHYLAXIS
     Dosage: 500 ML, UNK
     Route: 042
     Dates: start: 20070905, end: 20070913

REACTIONS (2)
  - BLOOD CREATININE INCREASED [None]
  - URINE OUTPUT DECREASED [None]
